FAERS Safety Report 16162476 (Version 1)
Quarter: 2019Q2

REPORT INFORMATION
  Report Type: Spontaneous
  Country: US (occurrence: US)
  Receive Date: 20190405
  Receipt Date: 20190405
  Transmission Date: 20190711
  Serious: Yes (Other)
  Sender: FDA-Public Use
  Company Number: PHEH2019US014195

PATIENT

DRUGS (1)
  1. COSENTYX [Suspect]
     Active Substance: SECUKINUMAB
     Indication: PRODUCT USED FOR UNKNOWN INDICATION
     Dosage: UNK
     Route: 065

REACTIONS (17)
  - Nasal discomfort [Unknown]
  - White blood cell count decreased [Unknown]
  - Impetigo [Unknown]
  - Diarrhoea [Unknown]
  - Tinea pedis [Unknown]
  - Oropharyngeal pain [Unknown]
  - Oral candidiasis [Unknown]
  - Eye infection [Unknown]
  - Ear infection [Unknown]
  - Tonsillitis [Unknown]
  - Transaminases increased [Unknown]
  - Urticaria [Unknown]
  - Abdominal discomfort [Unknown]
  - Respiratory tract infection [Unknown]
  - Sinusitis [Unknown]
  - Rhinorrhoea [Unknown]
  - Oral herpes [Unknown]
